FAERS Safety Report 5442056-3 (Version None)
Quarter: 2007Q3

REPORT INFORMATION
  Report Type: 
  Country: None (occurrence: None)
  Receive Date: 20070904
  Receipt Date: 20070831
  Transmission Date: 20080115
  Serious: Yes (Other)
  Sender: FDA-Public Use
  Company Number: A0677593A

PATIENT
  Age: 35 Year
  Sex: Female

DRUGS (2)
  1. BC ALLERGY SINUS HEADACHE POWDER [Suspect]
     Indication: SINUS DISORDER
     Route: 048
  2. BC HEADACHE POWDER [Concomitant]
     Route: 048

REACTIONS (1)
  - DEPENDENCE [None]
